FAERS Safety Report 6794430-0 (Version None)
Quarter: 2010Q2

REPORT INFORMATION
  Report Type: 
  Country: None (occurrence: None)
  Receive Date: 20100625
  Receipt Date: 20100617
  Transmission Date: 20101027
  Serious: No
  Sender: FDA-Public Use
  Company Number: 2009BI022154

PATIENT
  Sex: Female

DRUGS (1)
  1. TYSABRI [Suspect]
     Indication: MULTIPLE SCLEROSIS
     Route: 042
     Dates: start: 20061101

REACTIONS (5)
  - COORDINATION ABNORMAL [None]
  - H1N1 INFLUENZA [None]
  - INFLUENZA [None]
  - PYREXIA [None]
  - TREMOR [None]
